FAERS Safety Report 15073954 (Version 1)
Quarter: 2018Q2

REPORT INFORMATION
  Report Type: Spontaneous
  Country: US (occurrence: US)
  Receive Date: 20180627
  Receipt Date: 20180627
  Transmission Date: 20180711
  Serious: No
  Sender: FDA-Public Use
  Company Number: US-PFIZER INC-2018259152

PATIENT
  Age: 57 Year
  Sex: Female

DRUGS (11)
  1. DOCETAXEL. [Suspect]
     Active Substance: DOCETAXEL
     Indication: BREAST CANCER METASTATIC
     Dosage: 125 MG, CYCLIC (EVERY THREE WEEKS, NUMBER OF CYCLES 4)
     Route: 042
     Dates: start: 20070720, end: 20070920
  2. TAXOTERE [Suspect]
     Active Substance: DOCETAXEL
     Indication: BREAST CANCER METASTATIC
     Dosage: 125 MG, CYCLIC (EVERY THREE WEEKS, NUMBER OF CYCLES 4)
     Dates: start: 20070720, end: 20070920
  3. XELODA [Concomitant]
     Active Substance: CAPECITABINE
     Dosage: 1650 MG, UNK
     Route: 048
     Dates: start: 20070720, end: 20070920
  4. NEOSAR [Concomitant]
     Active Substance: CYCLOPHOSPHAMIDE
     Dosage: UNK
  5. ATIVAN [Concomitant]
     Active Substance: LORAZEPAM
     Dosage: UNK
  6. PROTONIX /00661201/ [Concomitant]
     Active Substance: OMEPRAZOLE
     Dosage: UNK
     Dates: start: 2001, end: 2007
  7. SIMVASTATIN. [Concomitant]
     Active Substance: SIMVASTATIN
     Dosage: UNK
     Dates: start: 2000
  8. QVAR [Concomitant]
     Active Substance: BECLOMETHASONE DIPROPIONATE
     Dosage: 80 MG, UNK
     Dates: start: 2005, end: 2008
  9. LOVASTATIN. [Concomitant]
     Active Substance: LOVASTATIN
     Dosage: UNK
  10. CYTOXAN [Concomitant]
     Active Substance: CYCLOPHOSPHAMIDE
     Dosage: UNK
  11. CELEXA [Concomitant]
     Active Substance: CITALOPRAM HYDROBROMIDE
     Dosage: UNK
     Dates: start: 2002

REACTIONS (5)
  - Hair texture abnormal [Unknown]
  - Hair disorder [Unknown]
  - Madarosis [Not Recovered/Not Resolved]
  - Alopecia [Not Recovered/Not Resolved]
  - Hair colour changes [Unknown]

NARRATIVE: CASE EVENT DATE: 2007
